FAERS Safety Report 9386823 (Version 2)
Quarter: 2013Q4

REPORT INFORMATION
  Report Type: Spontaneous
  Country: FR (occurrence: FR)
  Receive Date: 20130708
  Receipt Date: 20131008
  Transmission Date: 20140711
  Serious: Yes (Death)
  Sender: FDA-Public Use
  Company Number: FR-AMGEN-FRASP2013047024

PATIENT
  Age: 77 Year
  Sex: Male

DRUGS (12)
  1. MIMPARA [Suspect]
     Indication: HYPERPARATHYROIDISM SECONDARY
     Dosage: 30 MG, QD
     Route: 065
     Dates: start: 20130615, end: 20130624
  2. HYDROCORTISONE [Concomitant]
     Dosage: 10 MG, Q2WK
     Route: 048
     Dates: start: 20130612, end: 20130624
  3. MONO TILDIEM [Concomitant]
     Dosage: 200 MG, QD
     Dates: start: 20130611, end: 20130624
  4. RENAGEL                            /01459901/ [Concomitant]
     Dosage: 800 MG, QD
     Dates: start: 20130613, end: 20130624
  5. TAZOCILLINE [Concomitant]
  6. TAVANIC [Concomitant]
  7. AMPI                               /00000502/ [Concomitant]
  8. MONOTILDIEM [Concomitant]
  9. BUDESONIDE [Concomitant]
     Dosage: 2 MG, UNK
     Dates: start: 20130609, end: 20130624
  10. CONTRAMAL [Concomitant]
     Dosage: 50 MG, UNK
     Dates: start: 20130619, end: 20130624
  11. COUMADINE [Concomitant]
     Dosage: 7 MG, UNK
     Dates: start: 20130615, end: 20130624
  12. INEXIUM                            /01479302/ [Concomitant]

REACTIONS (2)
  - Death [Fatal]
  - Hepatitis fulminant [Fatal]
